FAERS Safety Report 21989695 (Version 1)
Quarter: 2023Q1

REPORT INFORMATION
  Report Type: Spontaneous
  Country: DE (occurrence: DE)
  Receive Date: 20230214
  Receipt Date: 20230214
  Transmission Date: 20230417
  Serious: Yes (Death, Congenital Anomaly, Other)
  Sender: FDA-Public Use
  Company Number: DE-EMBRYOTOX-202211008-B

PATIENT

DRUGS (2)
  1. FLUOXETINE [Suspect]
     Active Substance: FLUOXETINE HYDROCHLORIDE
     Indication: Obsessive-compulsive disorder
     Dosage: 20 MILLIGRAM, QD(20 [MG/D ]/ MATERNAL)
     Route: 064
     Dates: start: 20220827, end: 20221207
  2. COMIRNATY [Concomitant]
     Active Substance: TOZINAMERAN
     Indication: COVID-19 immunisation
     Dosage: 2VACCINATION09/2022 1VACCINATION PRECONCEPTIONAL
     Route: 065

REACTIONS (4)
  - Holoprosencephaly [Fatal]
  - Foetal exposure during pregnancy [Unknown]
  - Paternal exposure before pregnancy [Unknown]
  - Paternal exposure during pregnancy [Unknown]
